FAERS Safety Report 14103530 (Version 1)
Quarter: 2017Q4

REPORT INFORMATION
  Report Type: Spontaneous
  Country: JP (occurrence: JP)
  Receive Date: 20171018
  Receipt Date: 20171018
  Transmission Date: 20180321
  Serious: Yes (Other)
  Sender: FDA-Public Use
  Company Number: JP-BAYER-2017-194114

PATIENT
  Age: 78 Year
  Sex: Male

DRUGS (3)
  1. BAYASPIRIN 100 MG [Concomitant]
     Active Substance: ASPIRIN
  2. STIVARGA [Suspect]
     Active Substance: REGORAFENIB
     Indication: HEPATOCELLULAR CARCINOMA
     Dosage: 60 MG, BID
     Route: 048
     Dates: start: 201709, end: 201710
  3. PLETAAL [Concomitant]
     Active Substance: CILOSTAZOL

REACTIONS (5)
  - Decreased appetite [None]
  - Diarrhoea [None]
  - Liver disorder [None]
  - Hepatocellular carcinoma [None]
  - Weight decreased [None]
